FAERS Safety Report 21597381 (Version 1)
Quarter: 2022Q4

REPORT INFORMATION
  Report Type: Spontaneous
  Country: US (occurrence: None)
  Receive Date: 20221114
  Receipt Date: 20221114
  Transmission Date: 20230113
  Serious: No
  Sender: FDA-Public Use
  Company Number: None

PATIENT
  Sex: Male

DRUGS (2)
  1. DEPAKOTE ER [Suspect]
     Active Substance: DIVALPROEX SODIUM
  2. RISPERIDONE [Concomitant]
     Active Substance: RISPERIDONE

REACTIONS (6)
  - Product coating issue [None]
  - Food craving [None]
  - Drug dependence [None]
  - Weight increased [None]
  - Euphoric mood [None]
  - Selective eating disorder [None]
